FAERS Safety Report 5631148-1 (Version None)
Quarter: 2008Q1

REPORT INFORMATION
  Report Type: 
  Country: None (occurrence: None)
  Receive Date: 20080219
  Receipt Date: 20080123
  Transmission Date: 20080703
  Serious: No
  Sender: FDA-Public Use
  Company Number: US-BOEHRINGER INGELHEIM GMBH, GERMANY-2008-BP-01130BP

PATIENT
  Sex: Female

DRUGS (9)
  1. SPIRIVA [Suspect]
     Indication: CHRONIC OBSTRUCTIVE PULMONARY DISEASE
     Route: 055
     Dates: start: 20030101
  2. ALBUTEROL [Concomitant]
  3. AVISTA [Concomitant]
  4. LIPITOR [Concomitant]
  5. METOPROLOL TARTRATE [Concomitant]
  6. NEXIUM [Concomitant]
  7. VITAMINS [Concomitant]
  8. FISH OIL [Concomitant]
  9. CALCIUM D [Concomitant]

REACTIONS (1)
  - DRUG INEFFECTIVE [None]
